FAERS Safety Report 12448752 (Version 2)
Quarter: 2016Q2

REPORT INFORMATION
  Report Type: Report from Study
  Country: GB (occurrence: GB)
  Receive Date: 20160608
  Receipt Date: 20160630
  Transmission Date: 20160815
  Serious: No
  Sender: FDA-Public Use
  Company Number: GB-OTSUKA-2016_011979

PATIENT
  Age: 47 Year
  Sex: Male
  Weight: 74.4 kg

DRUGS (14)
  1. TOLVAPTAN [Suspect]
     Active Substance: TOLVAPTAN
     Dosage: 30 MG, QD IN EVENING
     Route: 048
     Dates: start: 20150915, end: 20150915
  2. TOLVAPTAN [Suspect]
     Active Substance: TOLVAPTAN
     Dosage: 60 MG, QD IN MORNING
     Route: 048
     Dates: start: 20150911, end: 20150914
  3. TOLVAPTAN [Suspect]
     Active Substance: TOLVAPTAN
     Dosage: 30 MG, QD IN EVENING
     Route: 048
     Dates: start: 20150916, end: 20150916
  4. TOLVAPTAN [Suspect]
     Active Substance: TOLVAPTAN
     Dosage: 45 MG, QD IN MORNING
     Route: 048
     Dates: start: 20150907, end: 20150910
  5. TOLVAPTAN [Suspect]
     Active Substance: TOLVAPTAN
     Dosage: PLACEBO IN EVENING
     Route: 048
     Dates: start: 20150826, end: 20150903
  6. TOLVAPTAN [Suspect]
     Active Substance: TOLVAPTAN
     Dosage: 15 MG, QD IN EVENING
     Route: 048
     Dates: start: 20150904, end: 20150906
  7. LANSOPRAZOLE. [Concomitant]
     Active Substance: LANSOPRAZOLE
     Indication: HIATUS HERNIA
     Dosage: 15 MG, QD
     Route: 048
     Dates: start: 20150730
  8. TOLVAPTAN [Suspect]
     Active Substance: TOLVAPTAN
     Indication: CONGENITAL CYSTIC KIDNEY DISEASE
     Dosage: 90 MG, QD IN MORNING
     Route: 048
     Dates: start: 20150915, end: 20150915
  9. TOLVAPTAN [Suspect]
     Active Substance: TOLVAPTAN
     Dosage: 30 MG, QD IN EVENING
     Route: 048
     Dates: start: 20150911, end: 20150914
  10. TOLVAPTAN [Suspect]
     Active Substance: TOLVAPTAN
     Dosage: 60 MG, QD IN MORNING
     Route: 048
     Dates: start: 20150916, end: 20150916
  11. TOLVAPTAN [Suspect]
     Active Substance: TOLVAPTAN
     Dosage: PLACEBO IN MORNING
     Route: 048
     Dates: start: 20150826, end: 20150903
  12. TOLVAPTAN [Suspect]
     Active Substance: TOLVAPTAN
     Dosage: 30 MG, QD IN MORNING
     Route: 048
     Dates: start: 20150904, end: 20150906
  13. TOLVAPTAN [Suspect]
     Active Substance: TOLVAPTAN
     Dosage: 15 MG, QD IN EVENING
     Route: 048
     Dates: start: 20150907, end: 20150910
  14. IRBESARTAN. [Concomitant]
     Active Substance: IRBESARTAN
     Indication: HYPERTENSION
     Dosage: 225 MG, QD
     Route: 048
     Dates: start: 20061109

REACTIONS (3)
  - Polyuria [Recovered/Resolved]
  - Urinary incontinence [Recovered/Resolved]
  - Sleep disorder [Recovering/Resolving]

NARRATIVE: CASE EVENT DATE: 20150906
